FAERS Safety Report 18319171 (Version 1)
Quarter: 2020Q3

REPORT INFORMATION
  Report Type: Spontaneous
  Country: US (occurrence: US)
  Receive Date: 20200928
  Receipt Date: 20200928
  Transmission Date: 20201103
  Serious: Yes (Other)
  Sender: FDA-Public Use
  Company Number: None

PATIENT
  Age: 74 Year
  Sex: Female
  Weight: 56.25 kg

DRUGS (11)
  1. AMOX?CLAV 875 MG TABLETS GENERIC FOR AUGMENTIN [Suspect]
     Active Substance: AMOXICILLIN\CLAVULANATE POTASSIUM
     Indication: SINUSITIS
     Dosage: ?          QUANTITY:20 TABLET(S);?
     Route: 048
     Dates: start: 20200920, end: 20200923
  2. HYDROCHLOROTHIZIDE [Concomitant]
     Active Substance: HYDROCHLOROTHIAZIDE
  3. CALTRATE 600MG +VITAMIN D 1000IU [Concomitant]
  4. TRELEGY ELLIPTA [Concomitant]
     Active Substance: FLUTICASONE FUROATE\UMECLIDINIUM BROMIDE\VILANTEROL TRIFENATATE
  5. SIMVASTATIN. [Concomitant]
     Active Substance: SIMVASTATIN
  6. PREMARIN [Concomitant]
     Active Substance: ESTROGENS, CONJUGATED
  7. MYRBRETRIQ [Concomitant]
  8. ASPIRIN 81 MG [Concomitant]
     Active Substance: ASPIRIN
  9. CITRUCEL [Concomitant]
     Active Substance: METHYLCELLULOSE (4000 MPA.S)
  10. AMLODIPINE [Concomitant]
     Active Substance: AMLODIPINE BESYLATE
  11. VITAMIN B12 [Concomitant]
     Active Substance: CYANOCOBALAMIN

REACTIONS (1)
  - Rash pruritic [None]

NARRATIVE: CASE EVENT DATE: 20200922
